FAERS Safety Report 22197964 (Version 1)
Quarter: 2023Q2

REPORT INFORMATION
  Report Type: Spontaneous
  Country: US (occurrence: None)
  Receive Date: 20230411
  Receipt Date: 20230411
  Transmission Date: 20230722
  Serious: No
  Sender: FDA-Public Use
  Company Number: None

PATIENT
  Age: 7 Week
  Sex: Female
  Weight: 77.11 kg

DRUGS (3)
  1. BRIMONIDINE TARTRATE [Suspect]
     Active Substance: BRIMONIDINE TARTRATE
     Indication: Glaucoma
     Dosage: FREQUENCY : TWICE A DAY;?
     Route: 031
     Dates: start: 202303, end: 202304
  2. BRIMONIDINE TARTRATE [Suspect]
     Active Substance: BRIMONIDINE TARTRATE
     Indication: Intraocular pressure increased
  3. BRIMONIDINE TARTRATE [Suspect]
     Active Substance: BRIMONIDINE TARTRATE
     Indication: Cataract

REACTIONS (6)
  - Recalled product administered [None]
  - Headache [None]
  - Ocular hyperaemia [None]
  - Lacrimation increased [None]
  - Periorbital swelling [None]
  - Eye swelling [None]

NARRATIVE: CASE EVENT DATE: 20230323
